FAERS Safety Report 18077411 (Version 1)
Quarter: 2020Q3

REPORT INFORMATION
  Report Type: Spontaneous
  Country: US (occurrence: US)
  Receive Date: 20200728
  Receipt Date: 20200728
  Transmission Date: 20201103
  Serious: No
  Sender: FDA-Public Use
  Company Number: US-GILEAD-2020-0485366

PATIENT

DRUGS (1)
  1. ATRIPLA [Suspect]
     Active Substance: EFAVIRENZ\EMTRICITABINE\TENOFOVIR DISOPROXIL FUMARATE
     Indication: ACQUIRED IMMUNODEFICIENCY SYNDROME
     Dosage: UNK
     Route: 048
     Dates: start: 2006, end: 2015

REACTIONS (8)
  - Blood creatinine increased [Unknown]
  - Bone density decreased [Unknown]
  - Renal impairment [Unknown]
  - Hypophosphataemia [Unknown]
  - Hyperphosphataemia [Unknown]
  - Albuminuria [Unknown]
  - Proteinuria [Unknown]
  - Tooth loss [Unknown]
